FAERS Safety Report 13485491 (Version 1)
Quarter: 2017Q2

REPORT INFORMATION
  Report Type: Spontaneous
  Country: US (occurrence: US)
  Receive Date: 20170425
  Receipt Date: 20170425
  Transmission Date: 20170830
  Serious: No
  Sender: FDA-Public Use
  Company Number: US-PFIZER INC-2017174992

PATIENT
  Age: 50 Year
  Sex: Female

DRUGS (2)
  1. LETROZOLE. [Suspect]
     Active Substance: LETROZOLE
     Dosage: UNK
  2. IBRANCE [Suspect]
     Active Substance: PALBOCICLIB
     Dosage: 125 MG, DAILY (TAKE 1 CAPSULE BY MOUTH DAILY FOR 3 WEEKS EVERY 4 WEEKS)
     Route: 048
     Dates: start: 201609

REACTIONS (4)
  - Skin burning sensation [Unknown]
  - Dry skin [Unknown]
  - Skin discolouration [Unknown]
  - Rash [Unknown]
